FAERS Safety Report 12519450 (Version 1)
Quarter: 2016Q2

REPORT INFORMATION
  Report Type: Spontaneous
  Country: FR (occurrence: FR)
  Receive Date: 20160630
  Receipt Date: 20160630
  Transmission Date: 20160815
  Serious: Yes (Hospitalization)
  Sender: FDA-Public Use
  Company Number: FR-GLAXOSMITHKLINE-FR2016GSK092390

PATIENT
  Age: 97 Year
  Sex: Male

DRUGS (8)
  1. DICLOFENAC SODIUM. [Suspect]
     Active Substance: DICLOFENAC SODIUM
     Indication: LOCALISED INFECTION
     Dosage: 1 %, UNK
     Route: 003
     Dates: start: 20160504, end: 20160523
  2. KARDEGIC [Concomitant]
     Active Substance: ASPIRIN LYSINE
     Dosage: UNK
     Dates: start: 201512
  3. OGASTORO [Concomitant]
     Active Substance: LANSOPRAZOLE
     Dosage: UNK
     Dates: start: 201512, end: 20160529
  4. LANTUS [Concomitant]
     Active Substance: INSULIN GLARGINE
     Dosage: UNK
     Dates: start: 201512
  5. NOVONORM [Concomitant]
     Active Substance: REPAGLINIDE
     Dosage: UNK
     Dates: start: 20151207, end: 20160525
  6. VOLTARENE [Suspect]
     Active Substance: DICLOFENAC SODIUM
     Indication: LOCALISED INFECTION
     Dosage: 50 MG, TID
     Route: 048
     Dates: start: 20160504, end: 20160523
  7. LASILIX [Concomitant]
     Active Substance: FUROSEMIDE
     Dosage: UNK
     Dates: start: 201512
  8. ALDACTONE [Concomitant]
     Active Substance: SPIRONOLACTONE
     Dosage: UNK
     Dates: start: 201512, end: 20160525

REACTIONS (1)
  - Infection [Unknown]

NARRATIVE: CASE EVENT DATE: 20160523
